FAERS Safety Report 12702631 (Version 1)
Quarter: 2016Q3

REPORT INFORMATION
  Report Type: Report from Study
  Country: US (occurrence: US)
  Receive Date: 20160831
  Receipt Date: 20160831
  Transmission Date: 20161109
  Serious: Yes (Hospitalization, Other)
  Sender: FDA-Public Use
  Company Number: US-PFIZER INC-2007086143

PATIENT
  Age: 59 Year
  Sex: Male
  Weight: 157 kg

DRUGS (11)
  1. NEXIUM [Concomitant]
     Active Substance: ESOMEPRAZOLE MAGNESIUM
     Dosage: FREQUENCY QD; INTERVAL QD
     Route: 048
     Dates: start: 20070918, end: 20071114
  2. CITALOPRAM [Concomitant]
     Active Substance: CITALOPRAM HYDROBROMIDE
     Route: 048
     Dates: start: 200704
  3. METOPROLOL. [Concomitant]
     Active Substance: METOPROLOL
     Route: 048
  4. MULTIVITAMINS [Concomitant]
     Active Substance: VITAMINS
     Route: 048
  5. GABAPENTIN. [Concomitant]
     Active Substance: GABAPENTIN
     Route: 048
  6. METFORMIN [Concomitant]
     Active Substance: METFORMIN HYDROCHLORIDE
     Route: 048
     Dates: end: 20071001
  7. LISINOPRIL. [Concomitant]
     Active Substance: LISINOPRIL
     Route: 048
  8. HUMULIN 70/30 [Concomitant]
     Active Substance: INSULIN HUMAN
     Dosage: 80 UNITS,Q AM
     Route: 058
     Dates: start: 1985
  9. AVAPRO [Concomitant]
     Active Substance: IRBESARTAN
     Route: 048
     Dates: start: 200704
  10. IBUPROFEN. [Suspect]
     Active Substance: IBUPROFEN
     Indication: OSTEOARTHRITIS
     Dosage: UNK
     Route: 048
     Dates: start: 20070918, end: 20071114
  11. LIPITOR [Concomitant]
     Active Substance: ATORVASTATIN CALCIUM
     Dosage: QHS
     Route: 048
     Dates: start: 2000

REACTIONS (1)
  - Cardiac failure congestive [Recovered/Resolved]

NARRATIVE: CASE EVENT DATE: 20071115
